FAERS Safety Report 9493318 (Version 1)
Quarter: 2013Q3

REPORT INFORMATION
  Report Type: Report from Study
  Country: AR (occurrence: AR)
  Receive Date: 20130902
  Receipt Date: 20130902
  Transmission Date: 20140515
  Serious: Yes (Death)
  Sender: FDA-Public Use
  Company Number: AR-ROCHE-1268229

PATIENT
  Age: 79 Year
  Sex: Female

DRUGS (1)
  1. RANIBIZUMAB [Suspect]
     Indication: MACULOPATHY
     Route: 050
     Dates: start: 201108

REACTIONS (2)
  - Cardio-respiratory arrest [Fatal]
  - Aortic disorder [Fatal]
